FAERS Safety Report 17238495 (Version 1)
Quarter: 2020Q1

REPORT INFORMATION
  Report Type: Report from Study
  Country: IL (occurrence: IL)
  Receive Date: 20200106
  Receipt Date: 20200106
  Transmission Date: 20200409
  Serious: Yes (Hospitalization, Other)
  Sender: FDA-Public Use
  Company Number: IL-JNJFOC-20200100092

PATIENT
  Sex: Female

DRUGS (1)
  1. STELARA [Suspect]
     Active Substance: USTEKINUMAB
     Indication: PSORIASIS
     Route: 058
     Dates: start: 20190526, end: 20191130

REACTIONS (3)
  - Salpingo-oophorectomy [Not Recovered/Not Resolved]
  - Tumour marker increased [Unknown]
  - Abdominal neoplasm [Not Recovered/Not Resolved]
